FAERS Safety Report 7962550-0 (Version None)
Quarter: 2011Q4

REPORT INFORMATION
  Report Type: 
  Country: None (occurrence: None)
  Receive Date: 20111207
  Receipt Date: 20111206
  Transmission Date: 20120403
  Serious: Yes (Hospitalization)
  Sender: FDA-Public Use
  Company Number: FR-GLAXOSMITHKLINE-B0767289A

PATIENT
  Sex: Male

DRUGS (15)
  1. MARAVIROC [Concomitant]
     Indication: HIV TEST POSITIVE
     Route: 065
     Dates: start: 20100709
  2. PAROXETINE HCL [Suspect]
     Indication: PRODUCT USED FOR UNKNOWN INDICATION
     Dosage: 20MG PER DAY
     Route: 048
     Dates: start: 20100625
  3. NORVIR [Concomitant]
     Indication: HIV TEST POSITIVE
     Route: 065
     Dates: start: 20100625
  4. TIAPRIDAL [Suspect]
     Indication: PRODUCT USED FOR UNKNOWN INDICATION
     Dosage: 300MG PER DAY
     Route: 048
     Dates: start: 20100625, end: 20111006
  5. PHENOBARBITAL TAB [Suspect]
     Indication: PRODUCT USED FOR UNKNOWN INDICATION
     Dosage: 200MG PER DAY
     Route: 048
     Dates: end: 20111014
  6. NOVORAPID [Concomitant]
     Indication: TYPE 1 DIABETES MELLITUS
     Route: 065
  7. LEVEMIR [Concomitant]
     Indication: TYPE 1 DIABETES MELLITUS
     Route: 065
  8. URBANYL [Concomitant]
     Route: 065
     Dates: start: 20111006
  9. ATARAX [Suspect]
     Indication: PRODUCT USED FOR UNKNOWN INDICATION
     Dosage: 25MG PER DAY
     Route: 048
     Dates: start: 20100625, end: 20111006
  10. HAVLANE [Suspect]
     Indication: PRODUCT USED FOR UNKNOWN INDICATION
     Dosage: .5UNIT PER DAY
     Route: 048
     Dates: start: 20100625, end: 20111006
  11. IMOVANE [Concomitant]
     Route: 065
     Dates: start: 20111006
  12. ABACAVIR SULFATE [Concomitant]
     Indication: HIV TEST POSITIVE
     Route: 065
     Dates: start: 20100625
  13. REYATAZ [Concomitant]
     Indication: HIV TEST POSITIVE
     Route: 065
     Dates: start: 20100625
  14. XANAX [Suspect]
     Indication: PRODUCT USED FOR UNKNOWN INDICATION
     Dosage: 2.5MG PER DAY
     Route: 048
     Dates: start: 20100625, end: 20111012
  15. LAMICTAL [Concomitant]
     Indication: EPILEPSY
     Route: 065

REACTIONS (3)
  - SUICIDAL IDEATION [None]
  - FALL [None]
  - SOMNOLENCE [None]
